FAERS Safety Report 15374442 (Version 1)
Quarter: 2018Q3

REPORT INFORMATION
  Report Type: Report from Study
  Country: CA (occurrence: CA)
  Receive Date: 20180912
  Receipt Date: 20180912
  Transmission Date: 20181010
  Serious: Yes (Other)
  Sender: FDA-Public Use
  Company Number: PHHY2014CA131069

PATIENT
  Age: 64 Year
  Sex: Male

DRUGS (4)
  1. ZOMETA [Suspect]
     Active Substance: ZOLEDRONIC ACID
     Indication: PRODUCT USED FOR UNKNOWN INDICATION
     Dosage: QMO
     Route: 065
  2. ASPIRIN. [Concomitant]
     Active Substance: ASPIRIN
     Indication: PRODUCT USED FOR UNKNOWN INDICATION
     Dosage: UNK, UNK (LOW DOSE)
     Route: 048
  3. SANDOSTATIN LAR DEPOT [Suspect]
     Active Substance: OCTREOTIDE ACETATE
     Dosage: 30 MG, QMO
     Route: 030
     Dates: start: 20170413
  4. SANDOSTATIN LAR DEPOT [Suspect]
     Active Substance: OCTREOTIDE ACETATE
     Indication: PANCREATIC NEUROENDOCRINE TUMOUR
     Dosage: 30 MG, QMO (EVERY 4 WEEKS)
     Route: 030
     Dates: start: 20140403, end: 20170315

REACTIONS (16)
  - Diarrhoea [Unknown]
  - Burning sensation [Unknown]
  - Phantom pain [Unknown]
  - Malignant neoplasm progression [Unknown]
  - Arthropod bite [Unknown]
  - Blood pressure increased [Unknown]
  - Body temperature decreased [Unknown]
  - Blood pressure systolic increased [Unknown]
  - Neuropathy peripheral [Unknown]
  - Asthenia [Unknown]
  - Second primary malignancy [Unknown]
  - Pancreatic neuroendocrine tumour [Unknown]
  - Fatigue [Unknown]
  - Joint injury [Unknown]
  - Skin cancer [Unknown]
  - Heart rate decreased [Unknown]

NARRATIVE: CASE EVENT DATE: 20140801
